FAERS Safety Report 19490467 (Version 1)
Quarter: 2021Q3

REPORT INFORMATION
  Report Type: Spontaneous
  Country: CN (occurrence: CN)
  Receive Date: 20210705
  Receipt Date: 20210705
  Transmission Date: 20211014
  Serious: Yes (Life-Threatening)
  Sender: FDA-Public Use
  Company Number: CN-JNJFOC-20210700571

PATIENT
  Age: 9 Day
  Sex: Male
  Weight: 1 kg

DRUGS (2)
  1. MOTRIN INFANTS [Suspect]
     Active Substance: IBUPROFEN
     Indication: NEONATAL RESPIRATORY DISTRESS SYNDROME
     Route: 048
     Dates: start: 20210609
  2. MOTRIN INFANTS [Suspect]
     Active Substance: IBUPROFEN
     Dosage: NEXT DAY WAS CHANGED TO 0.125ML PO QD FOR TWO DAYS (10?JUN TO 11?JUN)
     Route: 048
     Dates: start: 20210610, end: 20210611

REACTIONS (1)
  - Oliguria [Recovering/Resolving]

NARRATIVE: CASE EVENT DATE: 20210611
